FAERS Safety Report 9245492 (Version 2)
Quarter: 2013Q2

REPORT INFORMATION
  Report Type: Spontaneous
  Country: JP (occurrence: JP)
  Receive Date: 20130422
  Receipt Date: 20130606
  Transmission Date: 20140414
  Serious: Yes (Other)
  Sender: FDA-Public Use
  Company Number: JP-ASTELLAS-2013JP005199

PATIENT
  Sex: Male

DRUGS (7)
  1. PROGRAF [Suspect]
     Indication: COLITIS ULCERATIVE
     Dosage: 5 MG, UNKNOWN/D
     Route: 048
     Dates: start: 20130307, end: 20130313
  2. PROGRAF [Suspect]
     Dosage: 3 MG, UNKNOWN/D
     Route: 048
     Dates: start: 20130314, end: 20130320
  3. PROGRAF [Suspect]
     Dosage: 1 MG, UNKNOWN/D
     Route: 048
     Dates: start: 20130321, end: 20130327
  4. PROGRAF [Suspect]
     Dosage: 0.5 MG, UID/QD
     Route: 048
     Dates: start: 20130328
  5. DENOSINE /00784201/ [Suspect]
     Dosage: UNK
     Route: 065
  6. SULFAMETHOXAZOLE AND TRIMETHOPRIM [Suspect]
     Dosage: UNK
     Route: 048
     Dates: end: 20130321
  7. PREDNISOLONE [Concomitant]
     Dosage: 5 MG, UNKNOWN/D
     Route: 048

REACTIONS (3)
  - Vomiting [Recovered/Resolved]
  - Bone marrow failure [Recovered/Resolved]
  - Renal impairment [Recovered/Resolved]
